FAERS Safety Report 7969428-7 (Version None)
Quarter: 2011Q4

REPORT INFORMATION
  Report Type: 
  Country: None (occurrence: None)
  Receive Date: 20111212
  Receipt Date: 20111201
  Transmission Date: 20120403
  Serious: Yes (Other)
  Sender: FDA-Public Use
  Company Number: AU-BRISTOL-MYERS SQUIBB COMPANY-16266504

PATIENT
  Age: 54 Year
  Sex: Female
  Weight: 93 kg

DRUGS (8)
  1. PANTOPRAZOLE [Concomitant]
  2. METHOTREXATE [Concomitant]
  3. PREDNISONE [Concomitant]
  4. CALCIUM [Concomitant]
  5. METAMUCIL-2 [Concomitant]
  6. METFORMIN HCL [Concomitant]
  7. ORENCIA [Suspect]
     Route: 042
     Dates: start: 20100501
  8. FOLIC ACID [Concomitant]

REACTIONS (5)
  - SKIN NEOPLASM EXCISION [None]
  - INFECTION [None]
  - LOWER RESPIRATORY TRACT INFECTION [None]
  - CONJUNCTIVITIS [None]
  - PYREXIA [None]
